FAERS Safety Report 13795978 (Version 4)
Quarter: 2017Q3

REPORT INFORMATION
  Report Type: Report from Study
  Country: CO (occurrence: CO)
  Receive Date: 20170726
  Receipt Date: 20170922
  Transmission Date: 20171127
  Serious: Yes (Other)
  Sender: FDA-Public Use
  Company Number: PHHY2016CO089099

PATIENT
  Age: 36 Year
  Sex: Female
  Weight: 76 kg

DRUGS (6)
  1. LOSARTAN. [Concomitant]
     Active Substance: LOSARTAN
     Indication: MEAN ARTERIAL PRESSURE
     Dosage: 50 MG, QD
     Route: 048
  2. REVOLADE [Suspect]
     Active Substance: ELTROMBOPAG
     Indication: IMMUNE THROMBOCYTOPENIC PURPURA
     Dosage: 1 DF, Q96H
     Route: 048
     Dates: start: 20160616
  3. REVOLADE [Suspect]
     Active Substance: ELTROMBOPAG
     Dosage: 3 DF, QD
     Route: 048
  4. REVOLADE [Suspect]
     Active Substance: ELTROMBOPAG
     Dosage: 1 DF, QD
     Route: 048
     Dates: start: 201608
  5. ACETAMINOPHEN. [Concomitant]
     Active Substance: ACETAMINOPHEN
     Indication: PRODUCT USED FOR UNKNOWN INDICATION
     Route: 065
  6. BROMCRIPTIN [Suspect]
     Active Substance: BROMOCRIPTINE
     Indication: BLOOD PROLACTIN INCREASED
     Route: 065

REACTIONS (39)
  - Mouth haemorrhage [Unknown]
  - Eating disorder [Unknown]
  - Gait disturbance [Unknown]
  - Pyrexia [Unknown]
  - Petechiae [Unknown]
  - Swelling face [Recovered/Resolved]
  - Peripheral swelling [Recovered/Resolved]
  - Platelet count decreased [Unknown]
  - Asthenia [Unknown]
  - Head discomfort [Unknown]
  - Feeling abnormal [Unknown]
  - Skin discolouration [Unknown]
  - Swelling [Unknown]
  - Sense of oppression [Unknown]
  - Pallor [Unknown]
  - Ear pain [Unknown]
  - Blood pressure increased [Unknown]
  - Speech disorder [Unknown]
  - Oral discomfort [Unknown]
  - Hyperhidrosis [Unknown]
  - Skin warm [Unknown]
  - Lip dry [Unknown]
  - Fall [Unknown]
  - Headache [Unknown]
  - Back pain [Unknown]
  - Fatigue [Unknown]
  - Off label use [Unknown]
  - Gingival bleeding [Unknown]
  - Tongue discomfort [Unknown]
  - Limb discomfort [Unknown]
  - Generalised oedema [Recovered/Resolved]
  - Arthralgia [Unknown]
  - Weight increased [Recovered/Resolved]
  - Choking [Unknown]
  - Malaise [Unknown]
  - Gastrointestinal disorder [Unknown]
  - Pain in extremity [Unknown]
  - Dizziness [Recovered/Resolved]
  - Contusion [Unknown]

NARRATIVE: CASE EVENT DATE: 20160616
